FAERS Safety Report 14022049 (Version 1)
Quarter: 2017Q3

REPORT INFORMATION
  Report Type: Spontaneous
  Country: US (occurrence: US)
  Receive Date: 20170928
  Receipt Date: 20170928
  Transmission Date: 20171128
  Serious: Yes (Life-Threatening, Other)
  Sender: FDA-Public Use
  Company Number: None

PATIENT
  Age: 25 Year
  Sex: Male
  Weight: 78.75 kg

DRUGS (1)
  1. OLANZAPINE 10MG TABLETS [Suspect]
     Active Substance: OLANZAPINE

REACTIONS (12)
  - Dehydration [None]
  - Somnolence [None]
  - Vein disorder [None]
  - Skin tightness [None]
  - Dyspnoea [None]
  - Fatigue [None]
  - Sleep paralysis [None]
  - Muscle twitching [None]
  - Asthenia [None]
  - Headache [None]
  - Nausea [None]
  - Dry skin [None]

NARRATIVE: CASE EVENT DATE: 20170913
